FAERS Safety Report 18127177 (Version 1)
Quarter: 2020Q3

REPORT INFORMATION
  Report Type: Spontaneous
  Country: IN (occurrence: IN)
  Receive Date: 20200810
  Receipt Date: 20200810
  Transmission Date: 20201103
  Serious: Yes (Hospitalization, Other)
  Sender: FDA-Public Use
  Company Number: IN-SUN PHARMACEUTICAL INDUSTRIES LTD-2020R1-256081

PATIENT
  Age: 5 Year
  Sex: Female

DRUGS (4)
  1. METHOTREXATE. [Suspect]
     Active Substance: METHOTREXATE
     Indication: STILL^S DISEASE
     Dosage: UNK
     Route: 048
  2. TOCILIZUMAB. [Suspect]
     Active Substance: TOCILIZUMAB
     Indication: STILL^S DISEASE
     Dosage: 12 MILLIGRAM/KILOGRAM, FORTNIGHT
     Route: 065
  3. PREDNISONE. [Suspect]
     Active Substance: PREDNISONE
     Indication: STILL^S DISEASE
     Dosage: 0.3 MILLIGRAM/KILOGRAM, DAILY
     Route: 048
  4. LEFLUNOMIDE. [Suspect]
     Active Substance: LEFLUNOMIDE
     Indication: STILL^S DISEASE
     Dosage: UNK
     Route: 065

REACTIONS (5)
  - Adenovirus infection [Recovering/Resolving]
  - Disease recurrence [Unknown]
  - Pneumonia viral [Recovering/Resolving]
  - Haemophagocytic lymphohistiocytosis [Recovering/Resolving]
  - Drug resistance [Unknown]
